FAERS Safety Report 6637370-X (Version None)
Quarter: 2010Q1

REPORT INFORMATION
  Report Type: 
  Country: None (occurrence: None)
  Receive Date: 20100316
  Receipt Date: 20100308
  Transmission Date: 20100710
  Serious: Yes (Hospitalization, Other)
  Sender: FDA-Public Use
  Company Number: PHHO2006BR13084

PATIENT
  Sex: Male

DRUGS (5)
  1. CYCLOSPORINE [Suspect]
     Indication: RENAL TRANSPLANT
     Dosage: UNK, UNK
     Route: 048
     Dates: start: 20060713, end: 20060722
  2. CYCLOSPORINE [Suspect]
     Route: 048
     Dates: start: 20060904
  3. MYCOPHENOLATE MOFETIL [Suspect]
     Dates: start: 20060707
  4. PREDNISONE [Suspect]
     Dates: start: 20060709
  5. STEROIDS NOS [Suspect]

REACTIONS (20)
  - AGITATION [None]
  - DEVICE RELATED INFECTION [None]
  - DYSURIA [None]
  - ENTEROBACTER INFECTION [None]
  - GLIOSIS [None]
  - GRAFT DYSFUNCTION [None]
  - HALLUCINATION [None]
  - HYPERGLYCAEMIA [None]
  - HYPERNATRAEMIA [None]
  - MICROANGIOPATHY [None]
  - MUSCULAR WEAKNESS [None]
  - NOSOCOMIAL INFECTION [None]
  - PSEUDOMONAS INFECTION [None]
  - PYREXIA [None]
  - RESPIRATORY TRACT INFECTION [None]
  - STAPHYLOCOCCAL INFECTION [None]
  - TRANSAMINASES INCREASED [None]
  - URINARY TRACT INFECTION [None]
  - WOUND INFECTION PSEUDOMONAS [None]
  - WOUND SECRETION [None]
